FAERS Safety Report 15827309 (Version 1)
Quarter: 2019Q1

REPORT INFORMATION
  Report Type: Spontaneous
  Country: PT (occurrence: PT)
  Receive Date: 20190115
  Receipt Date: 20190115
  Transmission Date: 20190417
  Serious: Yes (Other)
  Sender: FDA-Public Use
  Company Number: PT-MYLANLABS-2019M1002905

PATIENT
  Age: 52 Year
  Sex: Female

DRUGS (6)
  1. FLEXIBAN [Suspect]
     Active Substance: CYCLOBENZAPRINE
     Indication: MYALGIA
     Dosage: 1 COMPRIMIDO 3 VEZES AO DIA DURANTE 10 DIAS, E DEPOIS 2 VEZES AO DIA DURANTE 5 DIAS
     Route: 048
     Dates: start: 20180622
  2. ALPRAZOLAM MYLAN [Concomitant]
     Active Substance: ALPRAZOLAM
     Dosage: UNK
     Route: 048
  3. ESCITALOPRAM TECNIGEN [Concomitant]
     Dosage: UNK
     Route: 048
  4. NAPROXENO GENERIS [Suspect]
     Active Substance: NAPROXEN
     Indication: MYALGIA
     Dosage: 1COMPRIMIDO AO FIM DO PEQUENO-ALMO?O E 1 AO FIM DO JANTAR
     Route: 048
     Dates: start: 20180622
  5. ATORVASTATINA TOLIFE [Concomitant]
     Active Substance: ATORVASTATIN CALCIUM
     Dosage: UNK
     Route: 048
  6. ESOMEPRAZOL                        /01479301/ [Concomitant]
     Active Substance: ESOMEPRAZOLE
     Dosage: UNK
     Route: 048

REACTIONS (4)
  - Vision blurred [Unknown]
  - Saliva discolouration [Unknown]
  - Saliva altered [Unknown]
  - Nausea [Unknown]

NARRATIVE: CASE EVENT DATE: 20180624
